FAERS Safety Report 12067372 (Version 1)
Quarter: 2016Q1

REPORT INFORMATION
  Report Type: Spontaneous
  Country: US (occurrence: US)
  Receive Date: 20160210
  Receipt Date: 20160210
  Transmission Date: 20160526
  Serious: No
  Sender: FDA-Public Use
  Company Number: US-ALLERGAN-1526546US

PATIENT
  Age: 13 Year
  Sex: Female

DRUGS (4)
  1. BOTOX [Suspect]
     Active Substance: ONABOTULINUMTOXINA
     Dosage: 50 UNITS, SINGLE
     Route: 023
     Dates: start: 20160106, end: 20160106
  2. BOTOX [Suspect]
     Active Substance: ONABOTULINUMTOXINA
     Dosage: 50 UNITS, SINGLE
     Route: 023
     Dates: start: 20160106, end: 20160106
  3. BOTOX [Suspect]
     Active Substance: ONABOTULINUMTOXINA
     Indication: HYPERHIDROSIS
     Dosage: 50 UNITS, SINGLE
     Route: 023
     Dates: start: 20151016, end: 20151016
  4. BOTOX [Suspect]
     Active Substance: ONABOTULINUMTOXINA
     Dosage: 50 UNITS, SINGLE
     Route: 023
     Dates: start: 20151016, end: 20151016

REACTIONS (4)
  - Off label use [Unknown]
  - Injection site pain [Unknown]
  - Compensatory sweating [Unknown]
  - Drug ineffective [Unknown]
